FAERS Safety Report 4311091-0 (Version None)
Quarter: 2004Q1

REPORT INFORMATION
  Report Type: 
  Country: None (occurrence: None)
  Receive Date: 20040302
  Receipt Date: 20040302
  Transmission Date: 20041129
  Serious: Yes (Hospitalization)
  Sender: FDA-Public Use
  Company Number: None

PATIENT
  Age: 83 Year
  Sex: Male
  Weight: 54.2 kg

DRUGS (29)
  1. HYDROCODONE [Suspect]
  2. FELODIPINE [Suspect]
     Dosage: 5 MG PO
     Route: 048
     Dates: start: 20030915, end: 20030926
  3. IPRATROPIUM/ALBUTEROL INHALER [Concomitant]
  4. ACETAMINOPHEN [Concomitant]
  5. TERAZOSIN HCL [Concomitant]
  6. SENNA [Concomitant]
  7. OLANZAPINE [Concomitant]
  8. LANSOPRAZOLE [Concomitant]
  9. LAMOTRIGINE [Concomitant]
  10. LACTULOSE [Concomitant]
  11. FLUOCINOLONE ACETONIDE [Concomitant]
  12. DOXYCYCLINE [Concomitant]
  13. CLONIDINE HCL [Concomitant]
  14. CITALOPRAM [Concomitant]
  15. METOCLOPRAMIDE [Concomitant]
  16. . [Concomitant]
  17. FLEET RECTAROID ENEMA [Concomitant]
  18. KETOCONAZOLE [Concomitant]
  19. FLUOCINOLONE ACETONIDE [Concomitant]
  20. IPRATROPIUM /ALBUTEROL INH [Concomitant]
  21. ALBUTEROL [Concomitant]
  22. ERYTHROPOETIN (PROCRIT) [Concomitant]
  23. MULTIVITAMINS W/ MINERALS [Concomitant]
  24. HYDROCHLOROTHIAZIDE [Concomitant]
  25. FOSINOPRIL SODIUM [Concomitant]
  26. FLUOCINOLONE ACETONIDE [Concomitant]
  27. NITROGLYCERIN TRANSDERMAL PATCH [Concomitant]
  28. IPRATROPIUM/ALBUTEROL INH [Concomitant]
  29. HYDROCHLOROTHIAZIDE [Concomitant]

REACTIONS (3)
  - CONSTIPATION [None]
  - NAUSEA [None]
  - VOMITING [None]
